FAERS Safety Report 5851537-X (Version None)
Quarter: 2008Q3

REPORT INFORMATION
  Report Type: 
  Country: None (occurrence: None)
  Receive Date: 20080820
  Receipt Date: 20080812
  Transmission Date: 20090109
  Serious: Yes (Disabling, Other)
  Sender: FDA-Public Use
  Company Number: IE-AMGEN-US296464

PATIENT
  Sex: Male

DRUGS (5)
  1. ENBREL [Suspect]
     Indication: ARTHRITIS
     Dosage: 100 PREFILLED SYRINGE MG ONCE WEEKLY
     Route: 058
     Dates: start: 20061201
  2. ENBREL [Suspect]
     Dosage: 50 MG LYOPHILISED (FREQUENCY UNKNOWN)
  3. METHOTREXATE SODIUM [Concomitant]
     Indication: ARTHRITIS
     Route: 048
     Dates: start: 20040909
  4. FOLIC ACID [Concomitant]
     Indication: VITAMIN SUPPLEMENTATION
     Route: 048
     Dates: start: 20040909
  5. OMEPRAZOLE [Concomitant]
     Indication: DYSPEPSIA
     Route: 048
     Dates: start: 20061125

REACTIONS (3)
  - INJECTION SITE HAEMORRHAGE [None]
  - INJECTION SITE PAIN [None]
  - PHARMACEUTICAL PRODUCT COMPLAINT [None]
